FAERS Safety Report 7571982-4 (Version None)
Quarter: 2011Q2

REPORT INFORMATION
  Report Type: 
  Country: None (occurrence: None)
  Receive Date: 20110620
  Receipt Date: 20110613
  Transmission Date: 20111010
  Serious: Yes (Other)
  Sender: FDA-Public Use
  Company Number: 201110708

PATIENT
  Age: 54 Year
  Sex: Female

DRUGS (2)
  1. MORPHINE [Concomitant]
  2. LIORESAL [Suspect]
     Indication: MUSCLE SPASTICITY
     Dosage: 550.1 MCG, DAILY, INTRATHECAL
     Route: 037

REACTIONS (3)
  - ANEURYSM RUPTURED [None]
  - MUSCLE SPASTICITY [None]
  - FALL [None]
